FAERS Safety Report 16723928 (Version 1)
Quarter: 2019Q3

REPORT INFORMATION
  Report Type: Spontaneous
  Country: US (occurrence: US)
  Receive Date: 20190821
  Receipt Date: 20190821
  Transmission Date: 20191005
  Serious: Yes (Other)
  Sender: FDA-Public Use
  Company Number: PHEH2019US034061

PATIENT
  Sex: Male

DRUGS (2)
  1. TELOTRISTAT ETHYL [Suspect]
     Active Substance: TELOTRISTAT ETHYL
     Indication: CARCINOID SYNDROME
     Dosage: 250 MG, TID
     Route: 048
  2. AFINITOR [Suspect]
     Active Substance: EVEROLIMUS
     Indication: CARCINOID SYNDROME
     Dosage: UNK UNK, QD
     Route: 048

REACTIONS (13)
  - Hypotension [Unknown]
  - Hypertension [Unknown]
  - Diarrhoea [Unknown]
  - Hyperkalaemia [Unknown]
  - Dizziness [Unknown]
  - Pelvic pain [Unknown]
  - Spinal pain [Unknown]
  - Hyperlipidaemia [Unknown]
  - Renal failure [Unknown]
  - Bone pain [Unknown]
  - Abdominal pain [Unknown]
  - Iron deficiency anaemia [Unknown]
  - Fatigue [Unknown]
